FAERS Safety Report 12363269 (Version 1)
Quarter: 2016Q2

REPORT INFORMATION
  Report Type: Spontaneous
  Country: US (occurrence: US)
  Receive Date: 20160512
  Receipt Date: 20160512
  Transmission Date: 20160815
  Serious: No
  Sender: FDA-Public Use
  Company Number: US-UCBSA-2015007977

PATIENT
  Age: 54 Year
  Sex: Female

DRUGS (1)
  1. CIMZIA [Suspect]
     Active Substance: CERTOLIZUMAB PEGOL
     Indication: RHEUMATOID ARTHRITIS
     Dosage: 200 MG, EV 2 WEEKS(QOW)
     Route: 058
     Dates: start: 20120208, end: 20131226

REACTIONS (5)
  - Rheumatoid arthritis [Unknown]
  - Injection site rash [Unknown]
  - Injection site haemorrhage [Unknown]
  - Injection site joint swelling [Unknown]
  - Injection site mass [Unknown]

NARRATIVE: CASE EVENT DATE: 20130916
